FAERS Safety Report 26116960 (Version 1)
Quarter: 2025Q4

REPORT INFORMATION
  Report Type: Spontaneous
  Country: GB (occurrence: GB)
  Receive Date: 20251203
  Receipt Date: 20251203
  Transmission Date: 20260118
  Serious: Yes (Hospitalization)
  Sender: MYLAN
  Company Number: GB-MYLANLABS-2025M1102655

PATIENT
  Sex: Female

DRUGS (4)
  1. CLOZARIL [Suspect]
     Active Substance: CLOZAPINE
     Indication: Schizophrenia
     Dosage: UNK (STOPPED TAKING CLOZAPINE AROUND 21-11-2025)
  2. CLOZARIL [Suspect]
     Active Substance: CLOZAPINE
     Dosage: UNK (STOPPED TAKING CLOZAPINE AROUND 21-11-2025)
     Route: 048
  3. CLOZARIL [Suspect]
     Active Substance: CLOZAPINE
     Dosage: UNK (STOPPED TAKING CLOZAPINE AROUND 21-11-2025)
     Route: 048
  4. CLOZARIL [Suspect]
     Active Substance: CLOZAPINE
     Dosage: UNK (STOPPED TAKING CLOZAPINE AROUND 21-11-2025)

REACTIONS (2)
  - Hospitalisation [Unknown]
  - Treatment noncompliance [Unknown]

NARRATIVE: CASE EVENT DATE: 20250101
